FAERS Safety Report 15142437 (Version 2)
Quarter: 2018Q3

REPORT INFORMATION
  Report Type: Report from Study
  Country: CO (occurrence: CO)
  Receive Date: 20180713
  Receipt Date: 20180727
  Transmission Date: 20181010
  Serious: Yes (Hospitalization)
  Sender: FDA-Public Use
  Company Number: CO-TAKEDA-2018TUS021807

PATIENT
  Age: 50 Year
  Sex: Female
  Weight: 70 kg

DRUGS (3)
  1. VEDOLIZUMAB [Suspect]
     Active Substance: VEDOLIZUMAB
     Indication: COLITIS ULCERATIVE
     Dosage: 300 MG, UNK
     Route: 042
     Dates: start: 20170713
  2. MESALAZINE [Concomitant]
     Active Substance: MESALAMINE
     Dosage: UNK, Q8HR
  3. AZATHIOPRINE. [Concomitant]
     Active Substance: AZATHIOPRINE
     Dosage: UNK UNK, Q12H

REACTIONS (3)
  - Abdominal pain [Unknown]
  - Haematochezia [Unknown]
  - Clostridium bacteraemia [Recovered/Resolved]

NARRATIVE: CASE EVENT DATE: 20180714
